FAERS Safety Report 15738678 (Version 1)
Quarter: 2018Q4

REPORT INFORMATION
  Report Type: Spontaneous
  Country: US (occurrence: US)
  Receive Date: 20181204
  Receipt Date: 20181204
  Transmission Date: 20190205
  Serious: Yes (Other)
  Sender: FDA-Public Use
  Company Number: None

PATIENT
  Sex: Male

DRUGS (1)
  1. EPCLUSA [Suspect]
     Active Substance: SOFOSBUVIR\VELPATASVIR
     Indication: CHRONIC HEPATITIS C
     Dosage: ?          OTHER DOSE:400/100 MG;?
     Route: 048
     Dates: start: 201810

REACTIONS (6)
  - Muscle swelling [None]
  - Insomnia [None]
  - Pain in extremity [None]
  - Photopsia [None]
  - Nervousness [None]
  - Ocular discomfort [None]
